FAERS Safety Report 6549341-2 (Version None)
Quarter: 2010Q1

REPORT INFORMATION
  Report Type: 
  Country: None (occurrence: None)
  Receive Date: 20100125
  Receipt Date: 20100112
  Transmission Date: 20100710
  Serious: Yes (Hospitalization)
  Sender: FDA-Public Use
  Company Number: PHHY2010FI02168

PATIENT
  Age: 73 Year
  Sex: Female

DRUGS (1)
  1. LEPONEX [Suspect]
     Indication: SCHIZOPHRENIA
     Dosage: 200 MG, QD
     Dates: start: 20091110

REACTIONS (8)
  - BLOOD ALBUMIN DECREASED [None]
  - C-REACTIVE PROTEIN INCREASED [None]
  - DIARRHOEA [None]
  - INFECTION [None]
  - MALABSORPTION [None]
  - PYELONEPHRITIS [None]
  - PYREXIA [None]
  - RESPIRATORY DISORDER [None]
